FAERS Safety Report 12174127 (Version 1)
Quarter: 2016Q1

REPORT INFORMATION
  Report Type: Spontaneous
  Country: US (occurrence: None)
  Receive Date: 20160311
  Receipt Date: 20160311
  Transmission Date: 20160526
  Serious: No
  Sender: FDA-Public Use
  Company Number: None

PATIENT
  Age: 63 Year
  Sex: Female

DRUGS (9)
  1. LEFLUNOMIDE. [Concomitant]
     Active Substance: LEFLUNOMIDE
  2. POTASSIUM CHLOR. [Concomitant]
  3. PROTONIX [Concomitant]
     Active Substance: PANTOPRAZOLE SODIUM
  4. FORTEO [Suspect]
     Active Substance: TERIPARATIDE
     Indication: OSTEOPOROSIS
     Route: 058
     Dates: start: 20151029, end: 20160201
  5. DOXYCYCLINE. [Concomitant]
     Active Substance: DOXYCYCLINE
  6. FENTANYL. [Concomitant]
     Active Substance: FENTANYL
  7. PREDNISONE. [Concomitant]
     Active Substance: PREDNISONE
  8. VITAMIN D [Concomitant]
     Active Substance: CHOLECALCIFEROL
  9. HYDROXYCLOROQUINE [Concomitant]
     Active Substance: HYDROXYCHLOROQUINE

REACTIONS (5)
  - Vomiting [None]
  - Dizziness postural [None]
  - Nausea [None]
  - Asthenia [None]
  - Abasia [None]

NARRATIVE: CASE EVENT DATE: 20160201
